FAERS Safety Report 8933578 (Version 3)
Quarter: 2013Q1

REPORT INFORMATION
  Report Type: Report from Study
  Country: JP (occurrence: JP)
  Receive Date: 20121129
  Receipt Date: 20130122
  Transmission Date: 20140127
  Serious: Yes (Death, Hospitalization)
  Sender: FDA-Public Use
  Company Number: JP-JNJFOC-20121114504

PATIENT
  Age: 69 Year
  Sex: Male
  Weight: 46 kg

DRUGS (16)
  1. STELARA [Suspect]
     Indication: PSORIATIC ARTHROPATHY
     Route: 058
     Dates: start: 20111111
  2. STELARA [Suspect]
     Indication: PSORIATIC ARTHROPATHY
     Route: 058
     Dates: start: 20120810, end: 20121119
  3. STELARA [Suspect]
     Indication: PSORIATIC ARTHROPATHY
     Route: 058
     Dates: start: 20120518
  4. STELARA [Suspect]
     Indication: PSORIATIC ARTHROPATHY
     Route: 058
     Dates: start: 20120420
  5. STELARA [Suspect]
     Indication: PSORIATIC ARTHROPATHY
     Route: 058
     Dates: start: 20111209
  6. PREDONINE [Concomitant]
     Indication: PSORIATIC ARTHROPATHY
     Route: 048
     Dates: start: 20120907, end: 20121120
  7. PREDONINE [Concomitant]
     Indication: PSORIATIC ARTHROPATHY
     Route: 048
     Dates: start: 20121124, end: 20121214
  8. PREDONINE [Concomitant]
     Indication: PSORIATIC ARTHROPATHY
     Route: 048
     Dates: start: 20120525, end: 20120906
  9. PREDONINE [Concomitant]
     Indication: PSORIATIC ARTHROPATHY
     Route: 048
     Dates: start: 20120401, end: 20120524
  10. PREDONINE [Concomitant]
     Indication: PSORIATIC ARTHROPATHY
     Route: 048
     Dates: start: 20120309, end: 20120331
  11. PREDONINE [Concomitant]
     Indication: PSORIATIC ARTHROPATHY
     Route: 048
     Dates: start: 20120210, end: 20120308
  12. PREDONINE [Concomitant]
     Indication: PSORIATIC ARTHROPATHY
     Route: 048
     Dates: start: 20120119, end: 20120209
  13. ALLELOCK [Concomitant]
     Indication: PSORIATIC ARTHROPATHY
     Route: 048
     Dates: end: 20121116
  14. VALSARTAN + HYDROCHLOROTHIAZIDE [Concomitant]
     Route: 048
     Dates: end: 20121116
  15. NORVASC [Concomitant]
     Route: 048
     Dates: end: 20121116
  16. PARIET [Concomitant]
     Route: 048

REACTIONS (5)
  - Multi-organ failure [Fatal]
  - Renal disorder [Fatal]
  - Wound infection [Recovered/Resolved]
  - Blister [Not Recovered/Not Resolved]
  - Injury [Recovering/Resolving]
